FAERS Safety Report 20783086 (Version 2)
Quarter: 2022Q2

REPORT INFORMATION
  Report Type: Spontaneous
  Country: US (occurrence: US)
  Receive Date: 20220504
  Receipt Date: 20220602
  Transmission Date: 20220721
  Serious: Yes (Other)
  Sender: FDA-Public Use
  Company Number: US-PFIZER INC-2021451144

PATIENT
  Age: 10 Year
  Sex: Male

DRUGS (1)
  1. SIROLIMUS [Suspect]
     Active Substance: SIROLIMUS
     Dosage: UNK

REACTIONS (8)
  - Klippel-Trenaunay syndrome [Unknown]
  - Condition aggravated [Unknown]
  - Anaemia [Unknown]
  - Disease recurrence [Unknown]
  - Therapeutic product effect incomplete [Unknown]
  - Headache [Unknown]
  - Visual impairment [Unknown]
  - Therapeutic response unexpected [Unknown]
